FAERS Safety Report 25095232 (Version 1)
Quarter: 2025Q1

REPORT INFORMATION
  Report Type: Spontaneous
  Country: US (occurrence: US)
  Receive Date: 20250319
  Receipt Date: 20250319
  Transmission Date: 20250409
  Serious: No
  Sender: GALDERMA
  Company Number: US-GALDERMA-US2024017657

PATIENT

DRUGS (6)
  1. PROACTIV MD ADAPALENE ACNE TREATMENT [Suspect]
     Active Substance: ADAPALENE
     Indication: Acne cystic
     Route: 061
     Dates: start: 202409
  2. PROACTIV CLEAR SKIN SPF 30 [Concomitant]
     Active Substance: AVOBENZONE\OCTISALATE\OCTOCRYLENE
     Indication: Acne cystic
     Route: 061
     Dates: start: 202409
  3. Proactiv MD Ultra Gentle Cleanser [Concomitant]
     Indication: Acne cystic
     Route: 061
     Dates: start: 202409
  4. COSMETICS [Concomitant]
     Active Substance: COSMETICS
     Indication: Acne cystic
     Route: 061
     Dates: start: 202409
  5. Proactiv Zits Happen Patches [Concomitant]
     Indication: Acne cystic
     Route: 061
     Dates: start: 202409
  6. Proactiv Post Blemish 10% Vitamin C Serum [Concomitant]
     Indication: Acne cystic
     Route: 061
     Dates: start: 202409

REACTIONS (2)
  - Drug ineffective for unapproved indication [Recovered/Resolved]
  - Product use in unapproved indication [Recovered/Resolved]

NARRATIVE: CASE EVENT DATE: 20240901
